FAERS Safety Report 9247617 (Version 2)
Quarter: 2013Q2

REPORT INFORMATION
  Report Type: Spontaneous
  Country: US (occurrence: US)
  Receive Date: 20130423
  Receipt Date: 20130503
  Transmission Date: 20140414
  Serious: Yes (Other)
  Sender: FDA-Public Use
  Company Number: US-PFIZER INC-2013125326

PATIENT
  Age: 73 Year
  Sex: Male
  Weight: 71.66 kg

DRUGS (3)
  1. LYRICA [Suspect]
     Indication: RHEUMATOID ARTHRITIS
     Dosage: 75 MG, DAILY
     Dates: start: 2008
  2. VISTARIL [Concomitant]
     Indication: HYPERTENSION
     Dosage: 20 MG, DAILY
  3. PROTONIX [Concomitant]
     Dosage: 40 MG, DAILY

REACTIONS (3)
  - Atrioventricular block [Unknown]
  - Malaise [Unknown]
  - Off label use [Unknown]
